FAERS Safety Report 17791847 (Version 1)
Quarter: 2020Q2

REPORT INFORMATION
  Report Type: Spontaneous
  Country: US (occurrence: US)
  Receive Date: 20200515
  Receipt Date: 20200515
  Transmission Date: 20200714
  Serious: Yes (Hospitalization)
  Sender: FDA-Public Use
  Company Number: None

PATIENT
  Age: 87 Year
  Sex: Female
  Weight: 54 kg

DRUGS (1)
  1. APIXABAN [Suspect]
     Active Substance: APIXABAN
     Indication: ATRIAL FIBRILLATION
     Dates: start: 20181008, end: 20200514

REACTIONS (5)
  - Blood creatinine increased [None]
  - Gastrointestinal haemorrhage [None]
  - Shock haemorrhagic [None]
  - Blood loss anaemia [None]
  - Nausea [None]

NARRATIVE: CASE EVENT DATE: 20200514
